FAERS Safety Report 8123126-8 (Version None)
Quarter: 2012Q1

REPORT INFORMATION
  Report Type: 
  Country: None (occurrence: None)
  Receive Date: 20120208
  Receipt Date: 20120130
  Transmission Date: 20120608
  Serious: Yes (Other)
  Sender: FDA-Public Use
  Company Number: US-BAXTER-2008BH000165

PATIENT
  Age: 33 Year
  Sex: Male
  Weight: 113 kg

DRUGS (18)
  1. HEPARIN SODIUM INJECTION [Suspect]
     Route: 040
     Dates: start: 20080105, end: 20080105
  2. WARFARIN SODIUM [Concomitant]
     Indication: PRODUCT USED FOR UNKNOWN INDICATION
     Route: 065
  3. ACETAMINOPHEN [Concomitant]
     Indication: PRODUCT USED FOR UNKNOWN INDICATION
     Route: 065
  4. HEPARIN SODIUM 5,000 UNITS IN DEXTROSE 5% [Suspect]
     Route: 041
     Dates: start: 20100505, end: 20100511
  5. MAGNESIUM [Concomitant]
     Indication: PRODUCT USED FOR UNKNOWN INDICATION
     Route: 065
  6. HEPARIN SODIUM 5,000 UNITS IN DEXTROSE 5% [Suspect]
     Indication: ATRIAL FIBRILLATION
     Route: 041
     Dates: start: 20080105, end: 20080107
  7. HEPARIN SODIUM INJECTION [Suspect]
     Route: 040
     Dates: start: 20080105, end: 20080105
  8. HEPARIN SODIUM INJECTION [Suspect]
     Route: 065
     Dates: start: 20100506, end: 20100506
  9. LISINOPRIL [Concomitant]
     Indication: PRODUCT USED FOR UNKNOWN INDICATION
     Route: 065
  10. DULCOLAX [Concomitant]
     Indication: PRODUCT USED FOR UNKNOWN INDICATION
     Route: 065
  11. AMBIEN [Concomitant]
     Indication: PRODUCT USED FOR UNKNOWN INDICATION
     Route: 065
     Dates: start: 20050101
  12. HEPARIN SODIUM INJECTION [Suspect]
     Indication: ATRIAL FIBRILLATION
     Route: 040
     Dates: start: 20080105, end: 20080105
  13. HEPARIN SODIUM INJECTION [Suspect]
     Route: 065
     Dates: start: 20070104
  14. COREG [Concomitant]
     Indication: PRODUCT USED FOR UNKNOWN INDICATION
     Route: 065
  15. WARFARIN SODIUM [Concomitant]
     Route: 065
  16. INSULIN [Concomitant]
     Indication: PRODUCT USED FOR UNKNOWN INDICATION
     Route: 065
  17. HEPARIN SODIUM INJECTION [Suspect]
     Route: 040
     Dates: start: 20080106, end: 20080106
  18. GLUCOPHAGE [Concomitant]
     Indication: PRODUCT USED FOR UNKNOWN INDICATION
     Route: 065

REACTIONS (10)
  - VENTRICULAR TACHYCARDIA [None]
  - MALAISE [None]
  - TACHYCARDIA [None]
  - HEADACHE [None]
  - VOMITING [None]
  - CARDIAC FAILURE CONGESTIVE [None]
  - SYNCOPE [None]
  - NAUSEA [None]
  - PAIN [None]
  - HYPERHIDROSIS [None]
